FAERS Safety Report 24047119 (Version 3)
Quarter: 2024Q3

REPORT INFORMATION
  Report Type: Report from Study
  Country: US (occurrence: US)
  Receive Date: 20240703
  Receipt Date: 20240924
  Transmission Date: 20241016
  Serious: Yes (Hospitalization)
  Sender: BAYER
  Company Number: US-BAYER-2024A093772

PATIENT
  Age: 62 Year
  Sex: Male

DRUGS (9)
  1. NUBEQA [Suspect]
     Active Substance: DAROLUTAMIDE
     Indication: Hormone-refractory prostate cancer
     Dosage: 600 MG, BID
     Route: 048
     Dates: start: 20240517
  2. NUBEQA [Suspect]
     Active Substance: DAROLUTAMIDE
     Indication: Hormone-refractory prostate cancer
     Dosage: 300 MG, BID
     Route: 048
  3. NUBEQA [Suspect]
     Active Substance: DAROLUTAMIDE
     Indication: Hormone-refractory prostate cancer
     Dosage: 600 MG, BID
  4. NUBEQA [Suspect]
     Active Substance: DAROLUTAMIDE
     Indication: Hormone-refractory prostate cancer
     Dosage: 300 MG, BID
  5. DOCETAXEL [Suspect]
     Active Substance: DOCETAXEL\DOCETAXEL ANHYDROUS
     Dosage: UNK
  6. GABAPENTIN [Concomitant]
     Active Substance: GABAPENTIN
     Dosage: UNK
  7. LISINOPRIL [Concomitant]
     Active Substance: LISINOPRIL
     Dosage: UNK
  8. ONDANSETRON HYDROCHLORIDE [Concomitant]
     Active Substance: ONDANSETRON HYDROCHLORIDE
     Dosage: UNK
  9. PROCHLORPERAZINE MALEATE [Concomitant]
     Active Substance: PROCHLORPERAZINE MALEATE
     Dosage: UNK

REACTIONS (8)
  - Troponin increased [Not Recovered/Not Resolved]
  - Lip dry [Unknown]
  - Hyperaesthesia [Unknown]
  - Paraesthesia [Unknown]
  - Myalgia [Not Recovered/Not Resolved]
  - Bone pain [Not Recovered/Not Resolved]
  - Asthenia [Unknown]
  - Pain in extremity [None]
